FAERS Safety Report 21364494 (Version 1)
Quarter: 2022Q3

REPORT INFORMATION
  Report Type: Spontaneous
  Country: US (occurrence: US)
  Receive Date: 20220922
  Receipt Date: 20220922
  Transmission Date: 20221026
  Serious: Yes (Other)
  Sender: FDA-Public Use
  Company Number: US-AMERICAN REGENT INC-2022002676

PATIENT
  Age: 42 Year
  Sex: Female

DRUGS (2)
  1. VENOFER [Suspect]
     Active Substance: IRON SUCROSE
     Indication: Product used for unknown indication
     Dosage: 500 MILLIGRAM
     Route: 042
     Dates: start: 20220826, end: 20220826
  2. METHYLPREDNISOLONE [Concomitant]
     Active Substance: METHYLPREDNISOLONE
     Indication: Premedication
     Dosage: UNK UNKNOWN
     Route: 065
     Dates: start: 20220826, end: 20220826

REACTIONS (9)
  - Tremor [Recovered/Resolved]
  - Troponin increased [Unknown]
  - Pain [Recovered/Resolved]
  - Skin tightness [Recovered/Resolved]
  - Burning sensation [Recovered/Resolved]
  - Leukocytosis [Recovering/Resolving]
  - Anxiety [Recovering/Resolving]
  - Chest pain [Recovering/Resolving]
  - Back pain [Recovering/Resolving]

NARRATIVE: CASE EVENT DATE: 20220826
